FAERS Safety Report 7538925-0 (Version None)
Quarter: 2011Q2

REPORT INFORMATION
  Report Type: 
  Country: None (occurrence: None)
  Receive Date: 20110610
  Receipt Date: 20110601
  Transmission Date: 20111010
  Serious: Yes (Other)
  Sender: FDA-Public Use
  Company Number: KR-JNJFOC-20100604074

PATIENT
  Sex: Female
  Weight: 75.9 kg

DRUGS (8)
  1. PROPRANOLOL HCL [Concomitant]
     Indication: PROPHYLAXIS
     Dates: start: 20100106, end: 20100531
  2. DOMPERIDONE MALEATE [Concomitant]
     Indication: PROPHYLAXIS
     Dates: start: 20090701, end: 20100531
  3. PROCYCLIDINE HYDROCHLORIDE [Concomitant]
     Indication: PROPHYLAXIS
     Dates: start: 20090702, end: 20100531
  4. ZOLPIDEM TARTRATE [Concomitant]
     Indication: INSOMNIA
     Dates: start: 20100401, end: 20100531
  5. ESCITALOPRAM OXALATE [Concomitant]
     Indication: DEPRESSION
     Dates: start: 20100118, end: 20100531
  6. VALPROATE SODIUM [Concomitant]
     Indication: SCHIZOPHRENIA
     Dates: start: 20070511, end: 20100519
  7. PALIPERIDONE PALMITATE [Suspect]
     Indication: SCHIZOPHRENIA
     Route: 030
     Dates: start: 20100514, end: 20100520
  8. LORAZEPAM [Concomitant]
     Indication: AGITATION
     Dates: start: 20091119, end: 20100530

REACTIONS (2)
  - ALANINE AMINOTRANSFERASE INCREASED [None]
  - ASPARTATE AMINOTRANSFERASE INCREASED [None]
